FAERS Safety Report 16799345 (Version 1)
Quarter: 2019Q3

REPORT INFORMATION
  Report Type: Spontaneous
  Country: US (occurrence: US)
  Receive Date: 20190722
  Receipt Date: 20190722
  Transmission Date: 20191005
  Serious: No
  Sender: FDA-Public Use
  Company Number: None

PATIENT
  Age: 75 Year
  Sex: Female
  Weight: 79.38 kg

DRUGS (11)
  1. I CAPS [Concomitant]
  2. MELATONIN [Concomitant]
     Active Substance: MELATONIN
  3. MYRBETRIQ [Suspect]
     Active Substance: MIRABEGRON
     Indication: STRESS URINARY INCONTINENCE
     Route: 048
     Dates: start: 20180920, end: 20180930
  4. BIOTIN [Concomitant]
     Active Substance: BIOTIN
  5. ZOCOR [Concomitant]
     Active Substance: SIMVASTATIN
  6. CELECOXIB. [Concomitant]
     Active Substance: CELECOXIB
  7. LISINOPRIL. [Concomitant]
     Active Substance: LISINOPRIL
  8. BUPROPION. [Concomitant]
     Active Substance: BUPROPION
  9. HCTZ [Concomitant]
     Active Substance: HYDROCHLOROTHIAZIDE
  10. DILTIAZEM HYDROCHLORIDE. [Concomitant]
     Active Substance: DILTIAZEM HYDROCHLORIDE
  11. TOLTERODONE [Concomitant]

REACTIONS (2)
  - Oedema peripheral [None]
  - Condition aggravated [None]

NARRATIVE: CASE EVENT DATE: 20180930
